FAERS Safety Report 23977153 (Version 1)
Quarter: 2024Q2

REPORT INFORMATION
  Report Type: Spontaneous
  Country: GB (occurrence: GB)
  Receive Date: 20240614
  Receipt Date: 20240614
  Transmission Date: 20240716
  Serious: Yes (Other)
  Sender: FDA-Public Use
  Company Number: GB-MHRA-TPP48443470C5724960YC1718181098043

PATIENT
  Age: 60 Year
  Sex: Female
  Weight: 96 kg

DRUGS (19)
  1. BUPRENORPHINE [Suspect]
     Active Substance: BUPRENORPHINE
     Indication: Ill-defined disorder
     Dosage: TPP YC - PLEASE RECLASSIFY
     Route: 065
     Dates: start: 20240612
  2. SEVODYNE [Concomitant]
     Indication: Ill-defined disorder
     Dosage: APPLY ONE PATCH EVERY SEVEN DAYS FOR PAIN RELIEF  (TPP YC - PLEASE RECLASSIFY)
     Route: 065
     Dates: start: 20240418, end: 20240516
  3. CHOLECALCIFEROL [Concomitant]
     Active Substance: CHOLECALCIFEROL
     Indication: Ill-defined disorder
     Dosage: TAKE ONE DAILY - TEMPORARY REPLACEMENT (TPP YC - PLEASE RECLASSIFY)
     Route: 065
     Dates: start: 20240521
  4. SALICYLIC ACID [Concomitant]
     Active Substance: SALICYLIC ACID
     Indication: Ill-defined disorder
     Dosage: APPLY ONCE DAILY AT NIGHT (TPP YC - PLEASE RECLASSIFY)
     Route: 065
     Dates: start: 20240418, end: 20240516
  5. BUPRENORPHINE [Concomitant]
     Active Substance: BUPRENORPHINE
     Indication: Ill-defined disorder
     Dosage: APPLY ONE WEEKLY (TPP YC - PLEASE RECLASSIFY)
     Route: 065
     Dates: start: 20240607
  6. HYDROXOCOBALAMIN [Concomitant]
     Active Substance: HYDROXOCOBALAMIN
     Indication: Ill-defined disorder
     Dosage: IM INJECTION EVERY 3MONTHS (TPP YC - PLEASE RECLASSIFY)
     Route: 065
     Dates: start: 20201214
  7. FERROUS FUMARATE [Concomitant]
     Active Substance: FERROUS FUMARATE
     Indication: Ill-defined disorder
     Dosage: TAKE ONE CAPSULE TWICE A DAY (TPP YC - PLEASE RECLASSIFY)
     Route: 065
     Dates: start: 20221010
  8. Adcal [Concomitant]
     Indication: Ill-defined disorder
     Dosage: TAKE ONE TWICE DAILY (TPP YC - PLEASE RECLASSIFY)
     Route: 065
     Dates: start: 20231009
  9. AMITRIPTYLINE HYDROCHLORIDE [Concomitant]
     Active Substance: AMITRIPTYLINE HYDROCHLORIDE
     Indication: Ill-defined disorder
     Dosage: TAKE ONE AS DIRECTED (TPP YC - PLEASE RECLASSIFY)
     Route: 065
     Dates: start: 20231009
  10. CHOLECALCIFEROL [Concomitant]
     Active Substance: CHOLECALCIFEROL
     Indication: Ill-defined disorder
     Dosage: TAKE ONE DAILY (TPP YC - PLEASE RECLASSIFY)
     Route: 065
     Dates: start: 20231009
  11. ESOMEPRAZOLE [Concomitant]
     Active Substance: ESOMEPRAZOLE
     Indication: Ill-defined disorder
     Dosage: TAKE ONE DAILY (TPP YC - PLEASE RECLASSIFY)
     Route: 065
     Dates: start: 20231009
  12. FOLIC ACID\IRON\MINERALS\VITAMINS [Concomitant]
     Active Substance: FOLIC ACID\IRON\MINERALS\VITAMINS
     Indication: Ill-defined disorder
     Dosage: TAKE ONE DAILY (TPP YC - PLEASE RECLASSIFY)
     Route: 065
     Dates: start: 20231009
  13. FUROSEMIDE [Concomitant]
     Active Substance: FUROSEMIDE
     Indication: Ill-defined disorder
     Dosage: TAKE ONE EACH MORNING. MUST REVIEW IN 3 MONTHS. (TPP YC - PLEASE RECLASSIFY)
     Route: 065
     Dates: start: 20231009
  14. GAVISCON [Concomitant]
     Active Substance: ALUMINUM HYDROXIDE\MAGNESIUM CARBONATE
     Indication: Ill-defined disorder
     Dosage: USE AS DIRECTED (TPP YC - PLEASE RECLASSIFY)
     Route: 065
     Dates: start: 20231009
  15. POLYETHYLENE GLYCOL 3350\POTASSIUM CHLORIDE\SODIUM BICARBONATE\SODIUM [Concomitant]
     Active Substance: POLYETHYLENE GLYCOL 3350\POTASSIUM CHLORIDE\SODIUM BICARBONATE\SODIUM CHLORIDE
     Indication: Ill-defined disorder
     Dosage: USE AS DIRECTED TWICE A DAY (TPP YC - PLEASE RECLASSIFY)
     Route: 065
     Dates: start: 20231009
  16. RAMIPRIL [Concomitant]
     Active Substance: RAMIPRIL
     Indication: Ill-defined disorder
     Dosage: TAKE ONE AT NIGHT (TPP YC - PLEASE RECLASSIFY)
     Route: 065
     Dates: start: 20231009
  17. ACETAMINOPHEN [Concomitant]
     Active Substance: ACETAMINOPHEN
     Indication: Ill-defined disorder
     Dosage: TAKE 1 OR 2 TABLETS 4 TIMES/DAY WHEN REQUIRED F... (TPP YC - PLEASE RECLASSIFY)
     Route: 065
     Dates: start: 20240129
  18. SERTRALINE [Concomitant]
     Active Substance: SERTRALINE HYDROCHLORIDE
     Indication: Ill-defined disorder
     Dosage: TAKE ONE TABLET DAILY (TPP YC - PLEASE RECLASSIFY)
     Route: 065
     Dates: start: 20240129
  19. TRAMADOL [Concomitant]
     Active Substance: TRAMADOL\TRAMADOL HYDROCHLORIDE
     Indication: Ill-defined disorder
     Dosage: TAKE ONE OR TWO CAPSULES UP TO FOUR TIMES A DAY... (TPP YC - PLEASE RECLASSIFY)
     Route: 065
     Dates: start: 20240129

REACTIONS (2)
  - Dermatitis bullous [Recovering/Resolving]
  - Abdominal pain upper [Recovering/Resolving]

NARRATIVE: CASE EVENT DATE: 20240612
